FAERS Safety Report 7128422-9 (Version None)
Quarter: 2010Q4

REPORT INFORMATION
  Report Type: 
  Country: None (occurrence: None)
  Receive Date: 20101112
  Receipt Date: 20101110
  Transmission Date: 20110411
  Serious: Yes (Death)
  Sender: FDA-Public Use
  Company Number: US-004104

PATIENT
  Age: 37 Year
  Sex: Female
  Weight: 122.4712 kg

DRUGS (1)
  1. TRANEXAMIC ACID [Suspect]
     Indication: MENORRHAGIA

REACTIONS (3)
  - ANOXIA [None]
  - CARDIAC ARREST [None]
  - PULMONARY EMBOLISM [None]
